FAERS Safety Report 6983679-X (Version None)
Quarter: 2010Q3

REPORT INFORMATION
  Report Type: 
  Country: None (occurrence: None)
  Receive Date: 20100914
  Receipt Date: 20081117
  Transmission Date: 20110219
  Serious: No
  Sender: FDA-Public Use
  Company Number: US-WYE-H06903208

PATIENT
  Age: 83 Year
  Sex: Male
  Weight: 72.64 kg

DRUGS (4)
  1. ADVIL LIQUI-GELS [Suspect]
     Indication: ANALGESIC THERAPY
     Route: 048
     Dates: start: 20081114
  2. ZOCOR [Concomitant]
  3. VITAMINS [Concomitant]
  4. PLAVIX [Concomitant]

REACTIONS (1)
  - POOR QUALITY SLEEP [None]
